FAERS Safety Report 21657300 (Version 5)
Quarter: 2023Q2

REPORT INFORMATION
  Report Type: Spontaneous
  Country: FR (occurrence: FR)
  Receive Date: 20221129
  Receipt Date: 20230614
  Transmission Date: 20230722
  Serious: Yes (Other)
  Sender: FDA-Public Use
  Company Number: FR-002147023-NVSC2022FR263134

PATIENT
  Age: 41 Year
  Sex: Female

DRUGS (12)
  1. KESIMPTA [Suspect]
     Active Substance: OFATUMUMAB
     Indication: Multiple sclerosis
     Dosage: UNK (INJECTION SITE: STOMACH)
     Route: 065
     Dates: start: 20220322
  2. KESIMPTA [Suspect]
     Active Substance: OFATUMUMAB
     Dosage: UNK (INJECTION SITE: RIGHT THIGH)
     Route: 065
     Dates: start: 20220329
  3. KESIMPTA [Suspect]
     Active Substance: OFATUMUMAB
     Dosage: UNK (INJECTION SITE: RIGHT THIGH)
     Route: 065
     Dates: start: 20220405
  4. KESIMPTA [Suspect]
     Active Substance: OFATUMUMAB
     Dosage: UNK (INJECTION SITE: RIGHT THIGH)
     Route: 065
     Dates: start: 20220420, end: 20230125
  5. FOSFOMYCIN [Concomitant]
     Active Substance: FOSFOMYCIN
     Indication: Product used for unknown indication
     Dosage: UNK, QW FOR ONE MONTH (FORMULATION: POWDER)
     Route: 065
  6. CEFIXIME [Concomitant]
     Active Substance: CEFIXIME
     Indication: Product used for unknown indication
     Dosage: 1 DOSAGE FORM, BIW FOR ONE MONTH
     Route: 048
  7. BACTRIM [Concomitant]
     Active Substance: SULFAMETHOXAZOLE\TRIMETHOPRIM
     Indication: Product used for unknown indication
     Dosage: 1 DOSAGE FORM, BIW FOR ONE MONTH
     Route: 048
  8. MUCOGYNE [Concomitant]
     Indication: Product used for unknown indication
     Dosage: ONE APPLICATION , BIW FOR THREE MONTHS
     Route: 067
  9. ESTRIOL [Concomitant]
     Active Substance: ESTRIOL
     Indication: Product used for unknown indication
     Dosage: UNK. FREQUENCY (LOCAL APPLICATION ON THE VULVA IN THE EVENING FOR THREE MONTHS)
     Route: 067
  10. SERETIDE [Concomitant]
     Active Substance: FLUTICASONE PROPIONATE\SALMETEROL XINAFOATE
     Indication: Product used for unknown indication
     Dosage: 250 ?G/ 25 ?G (DOSE 2), FREQUENCY: TWO INHALATIONS IN THE MORNING AND IN THE EVENING FOR ONE MONTH,
  11. NASACOR T [Concomitant]
     Indication: Product used for unknown indication
     Dosage: 55 UG (DOSE 1) FORMULATION: ONE SPRAY IN THE MORNING FOR THREE MONTHS
     Route: 045
  12. METHYLPREDNISOLONE HEMISUCCINATE [Concomitant]
     Active Substance: METHYLPREDNISOLONE HEMISUCCINATE
     Indication: Multiple sclerosis
     Dosage: UNK
     Route: 065
     Dates: start: 202304

REACTIONS (16)
  - Pneumonia [Recovered/Resolved]
  - Productive cough [Not Recovered/Not Resolved]
  - Bronchitis [Unknown]
  - Haemophilus infection [Unknown]
  - Cough [Unknown]
  - Sputum purulent [Unknown]
  - Nasal obstruction [Unknown]
  - Escherichia urinary tract infection [Recovered/Resolved]
  - Dysuria [Unknown]
  - Cystitis [Unknown]
  - Haematuria [Unknown]
  - Bladder hypertrophy [Unknown]
  - Sinusitis [Unknown]
  - Nasopharyngitis [Unknown]
  - Rhinitis [Not Recovered/Not Resolved]
  - Injection site pain [Unknown]

NARRATIVE: CASE EVENT DATE: 20220301
